FAERS Safety Report 24116223 (Version 1)
Quarter: 2024Q3

REPORT INFORMATION
  Report Type: Other
  Country: CH (occurrence: CH)
  Receive Date: 20240722
  Receipt Date: 20240722
  Transmission Date: 20241016
  Serious: Yes (Other)
  Sender: DEXCEL
  Company Number: CH-DEXPHARM-2024-2389

PATIENT
  Age: 51 Year
  Sex: Female

DRUGS (1)
  1. VENLAFAXINE [Suspect]
     Active Substance: VENLAFAXINE HYDROCHLORIDE
     Indication: Depression
     Dosage: 150 MG

REACTIONS (2)
  - Left ventricular hypertrophy [Recovered/Resolved]
  - Hypertension [Recovered/Resolved]
